FAERS Safety Report 4796824-1 (Version None)
Quarter: 2005Q4

REPORT INFORMATION
  Report Type: 
  Country: None (occurrence: None)
  Receive Date: 20051011
  Receipt Date: 20051011
  Transmission Date: 20060501
  Serious: Yes (Hospitalization)
  Sender: FDA-Public Use
  Company Number: None

PATIENT
  Age: 44 Year
  Sex: Male

DRUGS (6)
  1. LAMICTAL [Suspect]
     Indication: EPILEPSY
     Dosage: 100MG BID PO
     Route: 048
     Dates: start: 20050804, end: 20050812
  2. KEPPRA [Suspect]
     Indication: EPILEPSY
     Dosage: 500MG BID PO
     Route: 048
  3. WARFARIN [Concomitant]
  4. LIPITOR [Concomitant]
  5. GLARGINE INSULIN [Concomitant]
  6. LISPRO INSULIN [Concomitant]

REACTIONS (2)
  - LYMPH NODE PAIN [None]
  - TOXIC EPIDERMAL NECROLYSIS [None]
